FAERS Safety Report 16375116 (Version 2)
Quarter: 2019Q2

REPORT INFORMATION
  Report Type: Report from Study
  Country: None (occurrence: BR)
  Receive Date: 20190531
  Receipt Date: 20190612
  Transmission Date: 20190711
  Serious: Yes (Hospitalization, Other)
  Sender: FDA-Public Use
  Company Number: BR-ABBVIE-19K-020-2801206-00

PATIENT
  Age: 44 Year
  Sex: Male
  Weight: 52 kg

DRUGS (3)
  1. HUMIRA [Suspect]
     Active Substance: ADALIMUMAB
     Indication: ANKYLOSING SPONDYLITIS
     Route: 058
     Dates: start: 20120601
  2. ENDOFOLIN [Concomitant]
     Active Substance: FOLIC ACID
     Indication: ANKYLOSING SPONDYLITIS
  3. METHOTREXATE. [Concomitant]
     Active Substance: METHOTREXATE
     Indication: ANKYLOSING SPONDYLITIS

REACTIONS (9)
  - Renal disorder [Recovered/Resolved]
  - Cells in urine [Not Recovered/Not Resolved]
  - Blood urine present [Not Recovered/Not Resolved]
  - Nephrolithiasis [Not Recovered/Not Resolved]
  - Influenza [Recovered/Resolved]
  - Renal disorder [Recovered/Resolved]
  - Renal vein thrombosis [Not Recovered/Not Resolved]
  - Renal mass [Unknown]
  - Neoplasm [Unknown]

NARRATIVE: CASE EVENT DATE: 2018
